FAERS Safety Report 8290226-1 (Version None)
Quarter: 2012Q2

REPORT INFORMATION
  Report Type: 
  Country: None (occurrence: None)
  Receive Date: 20120417
  Receipt Date: 20120412
  Transmission Date: 20120825
  Serious: Yes (Other)
  Sender: FDA-Public Use
  Company Number: ES-ABBOTT-12P-144-0925002-00

PATIENT
  Age: 69 Year
  Sex: Female
  Weight: 85 kg

DRUGS (5)
  1. FUROSEMIDA + AMLODIPINE [Concomitant]
     Indication: HYPERTENSION
  2. DAFLON [Concomitant]
     Indication: ANGIOPATHY
     Route: 048
  3. HUMIRA [Suspect]
     Indication: PSORIASIS
     Route: 058
     Dates: start: 20100512, end: 20100923
  4. IBUPROFEN [Concomitant]
     Indication: OSTEOARTHRITIS
     Route: 048
  5. SIMVASTATIN [Concomitant]
     Indication: DYSLIPIDAEMIA
     Route: 048

REACTIONS (1)
  - NEPHROTIC SYNDROME [None]
